FAERS Safety Report 6656247-7 (Version None)
Quarter: 2010Q1

REPORT INFORMATION
  Report Type: 
  Country: None (occurrence: None)
  Receive Date: 20100326
  Receipt Date: 20100326
  Transmission Date: 20100710
  Serious: Yes (Other)
  Sender: FDA-Public Use
  Company Number: None

PATIENT
  Age: 5 Year
  Sex: Male
  Weight: 25.4 kg

DRUGS (1)
  1. BEVACIZUMAB 10MG/KG [Suspect]
     Indication: GLIOMA
     Dosage: 240 MG EVERY 3 WEEKS IV
     Route: 042
     Dates: start: 20090608, end: 20100311

REACTIONS (5)
  - ARTHRALGIA [None]
  - CHONDROPATHY [None]
  - GAIT DISTURBANCE [None]
  - JOINT SWELLING [None]
  - OEDEMA [None]
